FAERS Safety Report 23454522 (Version 2)
Quarter: 2024Q1

REPORT INFORMATION
  Report Type: Report from Study
  Country: CA (occurrence: CA)
  Receive Date: 20240130
  Receipt Date: 20240221
  Transmission Date: 20240409
  Serious: Yes (Hospitalization, Other)
  Sender: FDA-Public Use
  Company Number: CA-Vifor (International) Inc.-VIT-2024-00604

PATIENT
  Age: 68 Year
  Sex: Female

DRUGS (2)
  1. AVACOPAN [Suspect]
     Active Substance: AVACOPAN
     Indication: Anti-neutrophil cytoplasmic antibody positive vasculitis
     Dosage: 30 MILLIGRAM, QD
     Route: 048
     Dates: start: 20231220
  2. PREDNISONE [Concomitant]
     Active Substance: PREDNISONE
     Dosage: 1 GRAM
     Route: 042
     Dates: start: 20240108

REACTIONS (6)
  - Hot flush [Unknown]
  - Hypoaesthesia [Unknown]
  - Peripheral coldness [Unknown]
  - Ear disorder [Unknown]
  - Night sweats [Unknown]
  - Hyperhidrosis [Unknown]

NARRATIVE: CASE EVENT DATE: 20240117
